FAERS Safety Report 17885308 (Version 1)
Quarter: 2020Q2

REPORT INFORMATION
  Report Type: Spontaneous
  Country: US (occurrence: US)
  Receive Date: 20200611
  Receipt Date: 20200611
  Transmission Date: 20200714
  Serious: Yes (Other)
  Sender: FDA-Public Use
  Company Number: None

PATIENT
  Age: 33 Year
  Sex: Female
  Weight: 74.25 kg

DRUGS (2)
  1. NP THYROID [Suspect]
     Active Substance: LEVOTHYROXINE\LIOTHYRONINE
     Indication: HYPOTHYROIDISM
     Route: 048
     Dates: start: 20191124, end: 20191231
  2. PRE-NATAL VITAMENS [Concomitant]

REACTIONS (6)
  - Maternal exposure timing unspecified [None]
  - Maternal drugs affecting foetus [None]
  - Temperature intolerance [None]
  - Fatigue [None]
  - Heart rate increased [None]
  - Arrhythmia [None]

NARRATIVE: CASE EVENT DATE: 20191124
